FAERS Safety Report 9775870 (Version 1)
Quarter: 2013Q4

REPORT INFORMATION
  Report Type: Spontaneous
  Country: DE (occurrence: DE)
  Receive Date: 20131220
  Receipt Date: 20131220
  Transmission Date: 20140711
  Serious: Yes (Hospitalization, Other)
  Sender: FDA-Public Use
  Company Number: DE-PFIZER INC-2013362700

PATIENT
  Age: 74 Year
  Sex: Female
  Weight: 68 kg

DRUGS (3)
  1. VANCOMYCIN HCL [Suspect]
     Dosage: UNK
  2. METHOTREXATE SODIUM [Concomitant]
     Indication: POLYARTHRITIS
     Dosage: UNK
     Dates: start: 2006
  3. METHOTREXATE SODIUM [Concomitant]
     Indication: RHEUMATOID ARTHRITIS

REACTIONS (1)
  - Drug eruption [Unknown]
